FAERS Safety Report 6188910-9 (Version None)
Quarter: 2009Q2

REPORT INFORMATION
  Report Type: 
  Country: None (occurrence: None)
  Receive Date: 20090513
  Receipt Date: 20090507
  Transmission Date: 20091009
  Serious: Yes (Death, Hospitalization, Other)
  Sender: FDA-Public Use
  Company Number: PHEH2008US04763

PATIENT
  Sex: Male

DRUGS (16)
  1. ZOMETA [Suspect]
     Indication: PROSTATE CANCER
     Dosage: 4 MG, QMO
     Dates: start: 20031001, end: 20050628
  2. COMPAZINE [Concomitant]
  3. OXYCODONE HCL AND ACETAMINOPHEN [Concomitant]
  4. PREDNISONE [Concomitant]
  5. VALACYCLOVIR HCL [Concomitant]
  6. DEXAMETHASONE 4MG TAB [Concomitant]
  7. AMARYL [Concomitant]
     Dosage: 4 MG, QD
     Route: 048
  8. ATROPINE [Concomitant]
  9. LIPITOR [Concomitant]
  10. ELAVIL [Concomitant]
  11. ASPIRIN [Concomitant]
     Dosage: 81 MG, UNK
  12. TAXOTERE [Concomitant]
     Indication: PROSTATE CANCER
  13. CALCITRIOL [Concomitant]
  14. KEFLEX [Concomitant]
  15. ATENOLOL [Concomitant]
  16. DECADRON                                /CAN/ [Concomitant]

REACTIONS (39)
  - ANAEMIA [None]
  - ANHEDONIA [None]
  - ANXIETY [None]
  - ASBESTOSIS [None]
  - BONE DENSITY DECREASED [None]
  - BONE DISORDER [None]
  - BONE PAIN [None]
  - BREAKTHROUGH PAIN [None]
  - CHEST TUBE INSERTION [None]
  - CHOLECYSTECTOMY [None]
  - CHOLECYSTITIS INFECTIVE [None]
  - DECREASED APPETITE [None]
  - DENTURE WEARER [None]
  - EXCESSIVE GRANULATION TISSUE [None]
  - GENERAL PHYSICAL HEALTH DETERIORATION [None]
  - GINGIVAL DISORDER [None]
  - GINGIVAL OEDEMA [None]
  - HIP FRACTURE [None]
  - HYPOXIA [None]
  - INJURY [None]
  - JAW DISORDER [None]
  - LOOSE TOOTH [None]
  - MENTAL STATUS CHANGES [None]
  - METASTASES TO BONE [None]
  - OEDEMA PERIPHERAL [None]
  - ORAL DISORDER [None]
  - ORAL HERPES [None]
  - OSTEONECROSIS [None]
  - PAIN [None]
  - PAIN IN JAW [None]
  - PLEURAL DECORTICATION [None]
  - PLEURAL EFFUSION [None]
  - PNEUMONIA [None]
  - PROSTATE CANCER METASTATIC [None]
  - RESPIRATORY FAILURE [None]
  - TOOTH DISORDER [None]
  - TOOTH EXTRACTION [None]
  - TOOTH LOSS [None]
  - TRANSFUSION [None]
